FAERS Safety Report 4835325-9 (Version None)
Quarter: 2005Q4

REPORT INFORMATION
  Report Type: 
  Country: None (occurrence: None)
  Receive Date: 20051122
  Receipt Date: 20051115
  Transmission Date: 20060501
  Serious: Yes (Hospitalization)
  Sender: FDA-Public Use
  Company Number: AU-MERCK-0511AUS00258

PATIENT
  Age: 73 Year
  Sex: Female

DRUGS (6)
  1. FOSAMAX [Suspect]
     Indication: OSTEOPOROSIS
     Route: 048
     Dates: start: 20030101, end: 20050801
  2. FLUTICASONE PROPIONATE AND SALMETEROL XINAFOATE [Concomitant]
     Indication: ASTHMA
     Route: 065
  3. BUDESONIDE [Concomitant]
     Indication: SINUS DISORDER
     Route: 065
  4. TEMAZEPAM [Concomitant]
     Indication: INSOMNIA
     Route: 065
  5. CALCIUM (UNSPECIFIED) AND VITAMIN D (UNSPECIFIED) [Concomitant]
     Indication: OSTEOPOROSIS
     Route: 065
  6. [THERAPY UNSPECIFIED] [Concomitant]
     Indication: GLAUCOMA
     Route: 047

REACTIONS (6)
  - BARRETT'S OESOPHAGUS [None]
  - BLOOD CALCIUM DECREASED [None]
  - BLOOD IRON DECREASED [None]
  - CONDITION AGGRAVATED [None]
  - MALAISE [None]
  - OESOPHAGEAL ULCER [None]
